FAERS Safety Report 9943525 (Version 2)
Quarter: 2014Q1

REPORT INFORMATION
  Report Type: Report from Study
  Country: US (occurrence: US)
  Receive Date: 20140303
  Receipt Date: 20140303
  Transmission Date: 20141002
  Serious: No
  Sender: FDA-Public Use
  Company Number: US-ABBVIE-12P-163-0919152-00

PATIENT
  Age: 44 Year
  Sex: Male

DRUGS (9)
  1. HUMIRA [Suspect]
     Indication: PSORIASIS
     Route: 058
     Dates: start: 201110, end: 201206
  2. HUMIRA [Suspect]
     Route: 058
     Dates: start: 201206, end: 20121231
  3. GLUCOPHAGE [Concomitant]
     Indication: DIABETES MELLITUS
     Dates: end: 201208
  4. HYDROCHLOROTHIAZIDE [Concomitant]
     Indication: BLOOD PRESSURE FLUCTUATION
  5. KLOR-CON [Concomitant]
     Indication: BLOOD POTASSIUM DECREASED
  6. AMITRIPTYLINE [Concomitant]
     Indication: INSOMNIA
  7. IBUPROFEN [Concomitant]
     Indication: PAIN
  8. SKELAXIN [Concomitant]
     Indication: PAIN
  9. UNKNOWN FOAM (NAME UNKNOWN) [Concomitant]
     Indication: PSORIASIS
     Route: 061

REACTIONS (3)
  - Blood testosterone decreased [Recovering/Resolving]
  - Psoriasis [Recovering/Resolving]
  - Injection site irritation [Unknown]
